FAERS Safety Report 13698558 (Version 1)
Quarter: 2017Q2

REPORT INFORMATION
  Report Type: Report from Study
  Country: JP (occurrence: JP)
  Receive Date: 20170628
  Receipt Date: 20170628
  Transmission Date: 20170830
  Serious: Yes (Other)
  Sender: FDA-Public Use
  Company Number: JP-MYLANLABS-2017M1038646

PATIENT

DRUGS (2)
  1. MESALAZINE [Suspect]
     Active Substance: MESALAMINE
     Indication: COLITIS ULCERATIVE
     Dosage: 1500 MG; INCREASED TO 4000 MG
     Route: 065
  2. MESALAZINE [Suspect]
     Active Substance: MESALAMINE
     Dosage: 4000 MG
     Route: 065

REACTIONS (4)
  - Red blood cell sedimentation rate increased [Unknown]
  - Drug intolerance [Unknown]
  - C-reactive protein increased [Unknown]
  - Colitis ulcerative [Unknown]
